FAERS Safety Report 10385736 (Version 1)
Quarter: 2014Q3

REPORT INFORMATION
  Report Type: Spontaneous
  Country: FR (occurrence: None)
  Receive Date: 20140812
  Receipt Date: 20140812
  Transmission Date: 20150326
  Serious: Yes (Hospitalization)
  Sender: FDA-Public Use
  Company Number: 2014JUB00075

PATIENT
  Age: 58 Year
  Sex: Male

DRUGS (5)
  1. NICARDIPINE [Concomitant]
     Active Substance: NICARDIPINE
  2. LOSARTAN [Concomitant]
     Active Substance: LOSARTAN
  3. HYDROCHLOROTHIAZIDE (HYDROCHLOROTHIAZIDE) [Concomitant]
     Active Substance: HYDROCHLOROTHIAZIDE
  4. OLANZAPINE. [Suspect]
     Active Substance: OLANZAPINE
     Route: 030
  5. LOXAPINE (LOXAPINE) [Concomitant]

REACTIONS (8)
  - Dysarthria [None]
  - Hypertension [None]
  - Convulsion [None]
  - Post-injection delirium sedation syndrome [None]
  - Agitation [None]
  - Electroencephalogram abnormal [None]
  - Confusional state [None]
  - Toxicity to various agents [None]
